FAERS Safety Report 18314757 (Version 2)
Quarter: 2020Q4

REPORT INFORMATION
  Report Type: Report from Study
  Country: US (occurrence: US)
  Receive Date: 20200925
  Receipt Date: 20201002
  Transmission Date: 20210113
  Serious: Yes (Hospitalization, Other)
  Sender: FDA-Public Use
  Company Number: US-JNJFOC-20200924063

PATIENT
  Age: 52 Year
  Sex: Female
  Weight: 126.21 kg

DRUGS (4)
  1. OPSUMIT [Suspect]
     Active Substance: MACITENTAN
     Indication: PULMONARY ARTERIAL HYPERTENSION
     Dosage: 10 MG DAILY
     Route: 048
  2. UPTRAVI [Suspect]
     Active Substance: SELEXIPAG
     Indication: PULMONARY ARTERIAL HYPERTENSION
     Dosage: 1600 UG BID
     Route: 048
     Dates: end: 202008
  3. TREPROSTINIL. [Concomitant]
     Active Substance: TREPROSTINIL
     Dates: start: 202008
  4. ADEMPAS [Concomitant]
     Active Substance: RIOCIGUAT

REACTIONS (3)
  - Cerebral haemorrhage [Unknown]
  - Syncope [Unknown]
  - Ventriculo-peritoneal shunt [Unknown]
